FAERS Safety Report 21796749 (Version 1)
Quarter: 2022Q4

REPORT INFORMATION
  Report Type: Report from Study
  Country: US (occurrence: US)
  Receive Date: 20221230
  Receipt Date: 20221230
  Transmission Date: 20230113
  Serious: No
  Sender: FDA-Public Use
  Company Number: US-ABBVIE-4208607

PATIENT
  Sex: Female

DRUGS (1)
  1. SYNTHROID [Suspect]
     Active Substance: LEVOTHYROXINE SODIUM
     Indication: Product used for unknown indication
     Route: 048

REACTIONS (4)
  - Night sweats [Recovered/Resolved]
  - Feeling abnormal [Not Recovered/Not Resolved]
  - Hypothyroidism [Recovering/Resolving]
  - Hepatic enzyme increased [Not Recovered/Not Resolved]
